FAERS Safety Report 5179201-3 (Version None)
Quarter: 2006Q4

REPORT INFORMATION
  Report Type: 
  Country: None (occurrence: None)
  Receive Date: 20061211
  Receipt Date: 20061126
  Transmission Date: 20070319
  Serious: Yes (Hospitalization)
  Sender: FDA-Public Use
  Company Number: HQWYE550227NOV06

PATIENT
  Age: 58 Year
  Sex: Female

DRUGS (19)
  1. EFFEXOR XR [Suspect]
     Dosage: 2 CAPSULES IN THE MORNING; 1 CAPSULE IN THE MORNING ORAL
     Route: 048
  2. EFFEXOR [Suspect]
     Dosage: 1 CAPSULE IN THE MORNING, ORAL
     Route: 048
  3. TEGRETOL [Suspect]
     Indication: NEURALGIA
     Dosage: 4-6 DOSES (OVERDOSE AMOUNT)
     Dates: start: 20061101, end: 20061101
  4. UNISOM [Suspect]
     Dosage: 4 TABLETS (OVERDOSE AMOUNT)
     Dates: start: 20061101, end: 20061101
  5. CLONAZEPAM [Concomitant]
  6. DETROL [Concomitant]
  7. ZETIA [Concomitant]
  8. PRAVACHOL [Concomitant]
  9. NEFAZODONE HCL [Concomitant]
  10. NEURONTIN [Concomitant]
  11. ATENOLOL [Concomitant]
  12. ASPIRIN [Concomitant]
  13. FLONASE [Concomitant]
  14. SODIUM CHLORIDE 0.9% [Concomitant]
  15. PROTONIX [Concomitant]
  16. PRANDIN [Concomitant]
  17. ACTOS [Concomitant]
  18. METFORMIN HCL [Concomitant]
  19. GLYCERYL TRINITRATE (GLYCERYL TRINITRATE) [Concomitant]

REACTIONS (5)
  - DYSARTHRIA [None]
  - GAIT DISTURBANCE [None]
  - MENTAL STATUS CHANGES [None]
  - OVERDOSE [None]
  - SUICIDE ATTEMPT [None]
